FAERS Safety Report 18731476 (Version 1)
Quarter: 2021Q1

REPORT INFORMATION
  Report Type: Spontaneous
  Country: NL (occurrence: FR)
  Receive Date: 20210112
  Receipt Date: 20210112
  Transmission Date: 20210419
  Serious: Yes (Hospitalization)
  Sender: FDA-Public Use
  Company Number: FR-FRESENIUS KABI-FK202100305

PATIENT
  Age: 30 Year
  Sex: Female
  Weight: 48 kg

DRUGS (1)
  1. ROPIVACAINE FRESENIUS KABI (NOT SPECIFIED) [Suspect]
     Active Substance: ROPIVACAINE
     Indication: NERVE BLOCK
     Dosage: 10 ML OF ROPIVACAINE 0.2 PERCENT
     Route: 053
     Dates: start: 20201215, end: 20201215

REACTIONS (1)
  - Generalised tonic-clonic seizure [Recovered/Resolved]

NARRATIVE: CASE EVENT DATE: 20201215
